FAERS Safety Report 19495922 (Version 1)
Quarter: 2021Q3

REPORT INFORMATION
  Report Type: Report from Study
  Country: US (occurrence: US)
  Receive Date: 20210706
  Receipt Date: 20210706
  Transmission Date: 20211014
  Serious: Yes (Disabling)
  Sender: FDA-Public Use
  Company Number: US-SA-2021SA157674

PATIENT
  Age: 69 Year
  Sex: Female

DRUGS (1)
  1. DUPILUMAB [Suspect]
     Active Substance: DUPILUMAB
     Indication: DERMATITIS ATOPIC
     Dosage: 600 MG, 1X
     Route: 058
     Dates: start: 20210428, end: 20210428

REACTIONS (17)
  - Loss of personal independence in daily activities [Unknown]
  - Skin swelling [Unknown]
  - Eye discharge [Unknown]
  - Chills [Unknown]
  - Eye pain [Unknown]
  - Eyelid disorder [Unknown]
  - Skin exfoliation [Unknown]
  - Eye swelling [Unknown]
  - Lacrimation increased [Unknown]
  - Eyelid margin crusting [Unknown]
  - Ocular hyperaemia [Not Recovered/Not Resolved]
  - Hot flush [Unknown]
  - Feeling abnormal [Unknown]
  - Erythema [Unknown]
  - Swelling face [Not Recovered/Not Resolved]
  - Formication [Unknown]
  - Condition aggravated [Unknown]

NARRATIVE: CASE EVENT DATE: 202105
